FAERS Safety Report 6143690-8 (Version None)
Quarter: 2009Q2

REPORT INFORMATION
  Report Type: 
  Country: None (occurrence: None)
  Receive Date: 20090403
  Receipt Date: 20090327
  Transmission Date: 20091009
  Serious: Yes (Life-Threatening, Disabling)
  Sender: FDA-Public Use
  Company Number: YE-ABBOTT-09P-298-0565002-00

PATIENT
  Age: 10 Year
  Sex: Male

DRUGS (3)
  1. DEPAKENE [Suspect]
     Indication: EPILEPSY
  2. TOPIRAMATE [Concomitant]
     Indication: EPILEPSY
  3. CARBAMAZEPINE [Concomitant]
     Indication: EPILEPSY

REACTIONS (2)
  - EPILEPSY [None]
  - MEDICATION RESIDUE [None]
